FAERS Safety Report 8912708 (Version 2)
Quarter: 2012Q4

REPORT INFORMATION
  Report Type: 
  Country: JP (occurrence: JP)
  Receive Date: 20121115
  Receipt Date: 20121119
  Transmission Date: 20130627
  Serious: Yes (Other)
  Sender: FDA-Public Use
  Company Number: JP-ASTRAZENECA-2012SE85478

PATIENT
  Age: 36 Year
  Sex: Female

DRUGS (3)
  1. CARBOCAIN [Suspect]
     Indication: EPIDURAL ANAESTHESIA
     Route: 008
     Dates: start: 20121101, end: 20121101
  2. ANAPEINE [Suspect]
     Indication: EPIDURAL ANAESTHESIA
     Dosage: Dose unknown
     Route: 008
     Dates: start: 20121101, end: 20121101
  3. MARCAIN SPINAL [Suspect]
     Indication: SPINAL ANAESTHESIA
     Route: 029
     Dates: start: 20121101, end: 20121101

REACTIONS (1)
  - Monoplegia [Recovered/Resolved]
